FAERS Safety Report 4993521-4 (Version None)
Quarter: 2006Q2

REPORT INFORMATION
  Report Type: 
  Country: None (occurrence: None)
  Receive Date: 20060503
  Receipt Date: 20060503
  Transmission Date: 20061013
  Serious: Yes (Hospitalization, Disabling)
  Sender: FDA-Public Use
  Company Number: None

PATIENT
  Sex: Male
  Weight: 81.6475 kg

DRUGS (17)
  1. CYTOXAN [Suspect]
     Indication: PERIPHERAL T-CELL LYMPHOMA UNSPECIFIED
     Dosage: 750 MG/M2 IV OVER 1 HR DAY 1 Q 21 DAYS (SEE IMAGE)
     Route: 042
     Dates: start: 20060117
  2. CYTOXAN [Suspect]
     Indication: PERIPHERAL T-CELL LYMPHOMA UNSPECIFIED
     Dosage: 750 MG/M2 IV OVER 1 HR DAY 1 Q 21 DAYS (SEE IMAGE)
     Route: 042
     Dates: start: 20060213
  3. DOXORUBICIN HCL [Suspect]
     Dosage: 50 MG/M2 IVP DAY #1 Q 21 DAYS
     Route: 042
     Dates: start: 20060213
  4. VINCRISTINE [Suspect]
     Dosage: 1.4 MG/M2 MAX 2MG IVP DAY #1 Q 21 DAYS
  5. PREDNISONE TAB [Suspect]
     Dosage: 100 MG ON DAYS 1-5 Q 21 DAYS
  6. BACTRIM DS [Concomitant]
  7. VALTREX [Concomitant]
  8. LASIX [Concomitant]
  9. PLAVIX [Concomitant]
  10. METOPROLOL [Concomitant]
  11. CARTIA XT [Concomitant]
  12. LANTUS [Concomitant]
  13. SS INSULIN [Concomitant]
  14. MS CONTIN [Concomitant]
  15. DURAGESIC-100 [Concomitant]
  16. OXYCODONE [Concomitant]
  17. CAMPATH [Suspect]
     Dosage: 10 MG SQ DAY #1 Q 21 DAYS

REACTIONS (12)
  - ANOREXIA [None]
  - BRONCHITIS [None]
  - DRUG TOXICITY [None]
  - FATIGUE [None]
  - ILIAC ARTERY OCCLUSION [None]
  - LEG AMPUTATION [None]
  - LUNG INFILTRATION [None]
  - PAIN IN EXTREMITY [None]
  - PERIPHERAL COLDNESS [None]
  - PERIPHERAL ISCHAEMIA [None]
  - PERIPHERAL VASCULAR DISORDER [None]
  - TROPONIN INCREASED [None]
